FAERS Safety Report 6164610-6 (Version None)
Quarter: 2009Q2

REPORT INFORMATION
  Report Type: 
  Country: None (occurrence: None)
  Receive Date: 20090423
  Receipt Date: 20090415
  Transmission Date: 20091009
  Serious: Yes (Hospitalization)
  Sender: FDA-Public Use
  Company Number: JP-EISAI INC.-E2090-00703-SPO-JP

PATIENT
  Sex: Male

DRUGS (7)
  1. EXCEGRAN [Suspect]
     Route: 048
     Dates: start: 20080206, end: 20080310
  2. SELTOUCH [Concomitant]
     Dosage: UNKNOWN
     Route: 065
     Dates: end: 20080121
  3. MOHRUS TAPE [Concomitant]
     Dosage: UNKNOWN
     Route: 065
     Dates: start: 20080110, end: 20080120
  4. PARIET [Concomitant]
     Indication: GASTRIC ULCER
     Route: 048
     Dates: start: 20071127, end: 20080219
  5. CORTRIL [Concomitant]
     Dosage: UNKNOWN
     Route: 048
     Dates: start: 20080118, end: 20080215
  6. SELENICA-R [Concomitant]
     Route: 048
     Dates: start: 20080118, end: 20080205
  7. LOXONIN [Concomitant]
     Indication: HEADACHE
     Route: 048
     Dates: start: 20080123

REACTIONS (1)
  - DERMATITIS EXFOLIATIVE [None]
